FAERS Safety Report 15859292 (Version 2)
Quarter: 2019Q1

REPORT INFORMATION
  Report Type: Spontaneous
  Country: JP (occurrence: JP)
  Receive Date: 20190123
  Receipt Date: 20190228
  Transmission Date: 20190417
  Serious: Yes (Other)
  Sender: FDA-Public Use
  Company Number: JP-JNJFOC-20190125034

PATIENT

DRUGS (2)
  1. TOPINA [Suspect]
     Active Substance: TOPIRAMATE
     Indication: HEADACHE
     Route: 048
     Dates: start: 20181213, end: 20190116
  2. EXCEGRAN [Suspect]
     Active Substance: ZONISAMIDE
     Indication: HEADACHE
     Route: 048
     Dates: start: 20181215, end: 20190116

REACTIONS (3)
  - Off label use [Unknown]
  - Product use in unapproved indication [Unknown]
  - Drug reaction with eosinophilia and systemic symptoms [Recovered/Resolved]

NARRATIVE: CASE EVENT DATE: 20181213
